FAERS Safety Report 8008722-0 (Version None)
Quarter: 2011Q4

REPORT INFORMATION
  Report Type: 
  Country: None (occurrence: None)
  Receive Date: 20111227
  Receipt Date: 20111220
  Transmission Date: 20120403
  Serious: Yes (Other)
  Sender: FDA-Public Use
  Company Number: US-ASTRAZENECA-2011SE75402

PATIENT
  Age: 53 Year
  Sex: Male

DRUGS (1)
  1. NEXIUM [Suspect]
     Route: 048

REACTIONS (9)
  - DYSPEPSIA [None]
  - GASTROOESOPHAGEAL REFLUX DISEASE [None]
  - REGURGITATION [None]
  - PAIN IN EXTREMITY [None]
  - TACHYPHRENIA [None]
  - CHEST DISCOMFORT [None]
  - DRUG DOSE OMISSION [None]
  - HERNIA [None]
  - NERVE INJURY [None]
